FAERS Safety Report 8336830-3 (Version None)
Quarter: 2012Q2

REPORT INFORMATION
  Report Type: 
  Country: None (occurrence: None)
  Receive Date: 20120504
  Receipt Date: 20120502
  Transmission Date: 20120825
  Serious: Yes (Other)
  Sender: FDA-Public Use
  Company Number: US-PFIZER INC-2012108175

PATIENT
  Sex: Male
  Weight: 79.365 kg

DRUGS (2)
  1. DIOVAN [Concomitant]
     Indication: HYPERTENSION
     Dosage: 120 MG, DAILY
  2. VIAGRA [Suspect]
     Indication: CARDIOVASCULAR DISORDER
     Dosage: 100 MG, AS NEEDED

REACTIONS (1)
  - PROSTATE CANCER [None]
